FAERS Safety Report 8373780-0 (Version None)
Quarter: 2012Q2

REPORT INFORMATION
  Report Type: 
  Country: None (occurrence: None)
  Receive Date: 20120521
  Receipt Date: 20120517
  Transmission Date: 20120825
  Serious: Yes (Life-Threatening, Hospitalization, Other)
  Sender: FDA-Public Use
  Company Number: PHHY2012BR042580

PATIENT

DRUGS (1)
  1. EVEROLIMUS [Suspect]
     Dosage: 5 MG, QD
     Route: 048

REACTIONS (2)
  - ASTROCYTOMA, LOW GRADE [None]
  - COMA [None]
